FAERS Safety Report 4973154-6 (Version None)
Quarter: 2006Q2

REPORT INFORMATION
  Report Type: 
  Country: None (occurrence: None)
  Receive Date: 20060407
  Receipt Date: 20060328
  Transmission Date: 20061013
  Serious: Yes (Life-Threatening)
  Sender: FDA-Public Use
  Company Number: 06H-107-0306981-00

PATIENT
  Age: 45 Year
  Sex: Male

DRUGS (6)
  1. PRECEDEX [Suspect]
     Indication: SEDATION
     Dosage: INTRAVENOUS
     Route: 042
  2. MIDAZOLAM HCL [Concomitant]
  3. PROPOFOL [Concomitant]
  4. NALBUFIN [Concomitant]
  5. DEXAMETAZONE [Concomitant]
  6. ONDASETRON (ONDANSETRON) [Concomitant]

REACTIONS (4)
  - ACUTE PULMONARY OEDEMA [None]
  - HYPERTENSION [None]
  - MITRAL VALVE PROLAPSE [None]
  - TACHYCARDIA [None]
